FAERS Safety Report 15538284 (Version 3)
Quarter: 2018Q4

REPORT INFORMATION
  Report Type: Spontaneous
  Country: US (occurrence: US)
  Receive Date: 20181022
  Receipt Date: 20181126
  Transmission Date: 20190205
  Serious: No
  Sender: FDA-Public Use
  Company Number: US-PFIZER INC-2018424648

PATIENT
  Age: 65 Year
  Sex: Female
  Weight: 88 kg

DRUGS (20)
  1. CITALOPRAM [Concomitant]
     Active Substance: CITALOPRAM HYDROBROMIDE
     Indication: DEPRESSION
  2. LAMOTRIGINE. [Concomitant]
     Active Substance: LAMOTRIGINE
     Indication: NEUROPATHY PERIPHERAL
     Dosage: 150 MG, 1X/DAY (6 TABLETS AT NIGHT)
     Route: 048
  3. LAMOTRIGINE. [Concomitant]
     Active Substance: LAMOTRIGINE
     Indication: SEIZURE
  4. CYCLOBENZAPRINE. [Concomitant]
     Active Substance: CYCLOBENZAPRINE
     Indication: MUSCLE SPASMS
     Dosage: 10 MG, AS NEEDED (ONE TABLET 3 TIMES DAILY)
  5. POTASSIUM CHLORIDE. [Concomitant]
     Active Substance: POTASSIUM CHLORIDE
     Dosage: 10 MG, DAILY (1 TABLET EVERY DAY)
     Route: 048
  6. D-MANNOSE [Concomitant]
     Indication: URINARY TRACT INFECTION
     Dosage: 1350 MG, DAILY (2 IN THE MORNING AND ONE AT NIGHT)
  7. VITAMIN B12 [Concomitant]
     Active Substance: CYANOCOBALAMIN
     Indication: BONE DISORDER
     Dosage: 5000 MG, UNK
     Route: 048
  8. VITAMIN C [Concomitant]
     Active Substance: ASCORBIC ACID
     Dosage: 1000 MG, 1X/DAY
     Route: 048
  9. VITAMIN E [TOCOPHEROL] [Concomitant]
     Dosage: 400 IU, 1X/DAY
     Route: 048
  10. IBRANCE [Interacting]
     Active Substance: PALBOCICLIB
     Indication: BONE CANCER
  11. LISINOPRIL. [Concomitant]
     Active Substance: LISINOPRIL
     Indication: BLOOD PRESSURE ABNORMAL
     Dosage: 80 MG, DAILY (20 MG TABLET, ONE TABLET TWICE A DAY,TOGETHER AT NIGHT, 40 MG AT ONE TIME)
  12. CRANBERRY FRUIT [Concomitant]
     Indication: URINARY TRACT DISORDER
     Dosage: 475 MG, 1X/DAY
     Route: 048
  13. VITAMIN B6 [Concomitant]
     Active Substance: PYRIDOXINE HYDROCHLORIDE
     Dosage: 200 MG, 1X/DAY
     Route: 048
  14. CITALOPRAM [Concomitant]
     Active Substance: CITALOPRAM HYDROBROMIDE
     Indication: NEUROPATHY PERIPHERAL
     Dosage: 40 MG, DAILY (ONE TABLET A DAY)
     Route: 048
  15. BABY ASPIRIN [Concomitant]
     Active Substance: ASPIRIN
     Indication: COAGULOPATHY
     Dosage: UNK
     Route: 048
  16. SIMVASTATIN. [Concomitant]
     Active Substance: SIMVASTATIN
     Indication: BLOOD CHOLESTEROL ABNORMAL
     Dosage: 40 MG, 1X/DAY (ONE EVERY NIGHT)
     Route: 048
  17. FUROSEMIDE. [Concomitant]
     Active Substance: FUROSEMIDE
     Indication: BLOOD CHOLESTEROL ABNORMAL
     Dosage: 20 MG, 1X/DAY
     Route: 048
  18. VITAMIN B3 [Concomitant]
     Active Substance: NIACIN
     Dosage: 2000 IU, UNK
     Route: 048
  19. IBRANCE [Suspect]
     Active Substance: PALBOCICLIB
     Indication: BREAST CANCER FEMALE
     Dosage: 125 MG, CYCLIC (FOR 28 DAYS, OFF FOR ONE WEEK)
     Route: 048
     Dates: start: 2016
  20. ODORLESS GARLIC EXTRACT [Concomitant]
     Dosage: 1000 MG, 1X/DAY
     Route: 048

REACTIONS (3)
  - Infection [Unknown]
  - Drug interaction [Unknown]
  - Bone pain [Unknown]
